FAERS Safety Report 20417607 (Version 4)
Quarter: 2022Q1

REPORT INFORMATION
  Report Type: Spontaneous
  Country: US (occurrence: US)
  Receive Date: 20220202
  Receipt Date: 20220317
  Transmission Date: 20220423
  Serious: Yes (Other)
  Sender: FDA-Public Use
  Company Number: US-DECIPHERA PHARMACEUTICALS LLC-2022US000030

PATIENT
  Age: 68 Year
  Sex: Female

DRUGS (3)
  1. QINLOCK [Suspect]
     Active Substance: RIPRETINIB
     Indication: Gastrointestinal stromal tumour
     Dosage: 150 MILLIGRAM, QD
     Route: 048
     Dates: start: 20211028
  2. QINLOCK [Suspect]
     Active Substance: RIPRETINIB
     Dosage: 150 MILLIGRAM, QD
     Route: 048
     Dates: start: 20220117
  3. ALLEREST 12 HOUR [Concomitant]
     Indication: Product used for unknown indication
     Dosage: UNK UNK, QD

REACTIONS (6)
  - Metastases to liver [Unknown]
  - Ear congestion [Recovered/Resolved]
  - Throat irritation [Recovered/Resolved]
  - Dizziness [Unknown]
  - Cough [Recovered/Resolved]
  - Hypertension [Recovered/Resolved]

NARRATIVE: CASE EVENT DATE: 20220101
